FAERS Safety Report 9258966 (Version 1)
Quarter: 2013Q1

REPORT INFORMATION
  Report Type: Spontaneous
  Country: US (occurrence: None)
  Receive Date: 20121212
  Receipt Date: 20121212
  Transmission Date: 20140127
  Serious: No
  Sender: FDA-Public Use
  Company Number: 1211USA004783

PATIENT
  Age: 54 Year
  Sex: Male

DRUGS (3)
  1. VICTRELIS [Suspect]
     Dosage: 800MG, TID, ORAL
     Route: 048
     Dates: start: 20121102
  2. PEG-INTRON [Suspect]
     Dosage: UNK
     Dates: start: 20121102
  3. REBETOL [Suspect]
     Dosage: UNK
     Dates: start: 20121102

REACTIONS (1)
  - Haematocrit decreased [None]
